FAERS Safety Report 20534221 (Version 1)
Quarter: 2022Q1

REPORT INFORMATION
  Report Type: Report from Study
  Country: CO (occurrence: CO)
  Receive Date: 20220301
  Receipt Date: 20220301
  Transmission Date: 20220423
  Serious: Yes (Hospitalization, Other)
  Sender: FDA-Public Use
  Company Number: CO-ABBVIE-22K-036-4294265-00

PATIENT
  Age: 28 Year
  Sex: Female
  Weight: 61 kg

DRUGS (1)
  1. HUMIRA [Suspect]
     Active Substance: ADALIMUMAB
     Indication: Hidradenitis
     Route: 058
     Dates: start: 20200630, end: 20211022

REACTIONS (8)
  - Bartholin^s cyst [Recovering/Resolving]
  - Hidradenitis [Recovering/Resolving]
  - Mass [Recovering/Resolving]
  - Inflammation [Unknown]
  - Hidradenitis [Recovering/Resolving]
  - Purulent discharge [Recovering/Resolving]
  - Abdominal pain lower [Unknown]
  - Hidradenitis [Recovering/Resolving]

NARRATIVE: CASE EVENT DATE: 20211129
